FAERS Safety Report 8770839 (Version 1)
Quarter: 2012Q4

REPORT INFORMATION
  Report Type: 
  Country: CO (occurrence: CO)
  Receive Date: 20120906
  Receipt Date: 20120906
  Transmission Date: 20130627
  Serious: Yes (Other)
  Sender: FDA-Public Use
  Company Number: CO-PFIZER INC-2012217546

PATIENT
  Age: 62 Year
  Sex: Female

DRUGS (2)
  1. LYRICA [Suspect]
     Indication: MUSCLE SPASMS
     Dosage: 75 mg, 1x/day
     Route: 048
     Dates: start: 20120827
  2. LANSOPRAZOLE [Concomitant]
     Indication: REFLUX GASTRITIS
     Route: 065

REACTIONS (5)
  - Hypersensitivity [Unknown]
  - Bronchial secretion retention [Unknown]
  - Somnolence [Unknown]
  - Dizziness [Unknown]
  - Drug ineffective [Unknown]
